FAERS Safety Report 5043770-4 (Version None)
Quarter: 2006Q2

REPORT INFORMATION
  Report Type: 
  Country: None (occurrence: None)
  Receive Date: 20060601
  Receipt Date: 20060131
  Transmission Date: 20061013
  Serious: No
  Sender: FDA-Public Use
  Company Number: 2006PV007898

PATIENT
  Age: 67 Year
  Sex: Male

DRUGS (6)
  1. BYETTA [Suspect]
     Indication: DIABETES MELLITUS NON-INSULIN-DEPENDENT
     Dosage: 5 MCG;BID;SC
     Route: 058
     Dates: start: 20060128
  2. AVANDIA [Concomitant]
  3. GLIMEPIRIDE [Concomitant]
  4. METOPROLOL [Concomitant]
  5. LIPITOR [Concomitant]
  6. CHRONAGEN [Concomitant]

REACTIONS (4)
  - BLOOD GLUCOSE DECREASED [None]
  - DECREASED APPETITE [None]
  - DISORIENTATION [None]
  - HYPERHIDROSIS [None]
